FAERS Safety Report 16922941 (Version 2)
Quarter: 2019Q4

REPORT INFORMATION
  Report Type: Report from Study
  Country: None (occurrence: BG)
  Receive Date: 20191016
  Receipt Date: 20191121
  Transmission Date: 20200122
  Serious: Yes (Hospitalization)
  Sender: FDA-Public Use
  Company Number: BG-ABBVIE-19K-022-2962948-00

PATIENT
  Age: 66 Year
  Sex: Female

DRUGS (1)
  1. HUMIRA [Suspect]
     Active Substance: ADALIMUMAB
     Indication: PSORIATIC ARTHROPATHY
     Dosage: 2 APPLICATIONS OF HUMIRA.
     Route: 058

REACTIONS (3)
  - Pain [Not Recovered/Not Resolved]
  - Dysstasia [Unknown]
  - Swelling [Not Recovered/Not Resolved]
